FAERS Safety Report 4753125-5 (Version None)
Quarter: 2005Q3

REPORT INFORMATION
  Report Type: 
  Country: None (occurrence: None)
  Receive Date: 20050826
  Receipt Date: 20050121
  Transmission Date: 20060218
  Serious: Yes (Hospitalization, Disabling)
  Sender: FDA-Public Use
  Company Number: CA-MERCK-0501CAN00114

PATIENT
  Age: 56 Year
  Sex: Female
  Weight: 102 kg

DRUGS (16)
  1. VIOXX [Suspect]
     Indication: RHEUMATOID ARTHRITIS
     Route: 048
     Dates: start: 19990101, end: 20021201
  2. VIOXX [Suspect]
     Route: 048
     Dates: start: 20021201, end: 20040901
  3. VIOXX [Suspect]
     Indication: OSTEOARTHRITIS
     Route: 048
     Dates: start: 19990101, end: 20021201
  4. VIOXX [Suspect]
     Route: 048
     Dates: start: 20021201, end: 20040901
  5. GLYBURIDE [Concomitant]
     Indication: DIABETES MELLITUS
     Route: 065
  6. FUROSEMIDE [Concomitant]
     Indication: OEDEMA
     Route: 065
  7. AMLODIPINE BESYLATE [Concomitant]
     Indication: HYPERTENSION
     Route: 065
  8. METOPROLOL [Concomitant]
     Indication: BLOOD PRESSURE
     Route: 065
  9. AMITRIPTYLINE HYDROCHLORIDE [Concomitant]
     Indication: INSOMNIA
     Route: 065
  10. AMITRIPTYLINE HYDROCHLORIDE [Concomitant]
     Indication: DEPRESSION
     Route: 065
  11. FOSINOPRIL SODIUM [Concomitant]
     Indication: DIABETES MELLITUS
     Route: 065
  12. ALLOPURINOL [Concomitant]
     Route: 065
  13. INDAPAMIDE [Concomitant]
     Route: 065
  14. METFORMIN [Concomitant]
     Route: 065
  15. DICLOFENAC [Concomitant]
     Route: 065
  16. KETOROLAC TROMETHAMINE [Concomitant]
     Route: 065

REACTIONS (6)
  - ADVERSE EVENT [None]
  - ATRIAL FIBRILLATION [None]
  - DEPRESSION [None]
  - ELECTROCARDIOGRAM ST SEGMENT ELEVATION [None]
  - INSOMNIA [None]
  - TRANSIENT ISCHAEMIC ATTACK [None]
